FAERS Safety Report 18069779 (Version 5)
Quarter: 2021Q2

REPORT INFORMATION
  Report Type: Spontaneous
  Country: US (occurrence: US)
  Receive Date: 20200727
  Receipt Date: 20210531
  Transmission Date: 20210717
  Serious: Yes (Hospitalization, Other)
  Sender: FDA-Public Use
  Company Number: US-JNJFOC-20200725566

PATIENT
  Age: 3 Decade
  Sex: Female
  Weight: 77.18 kg

DRUGS (7)
  1. JOHNSONS BABY POWDER (TALC) [Suspect]
     Active Substance: TALC
     Indication: PRODUCT USED FOR UNKNOWN INDICATION
  2. SYNTHROID [Concomitant]
     Active Substance: LEVOTHYROXINE SODIUM
     Indication: PRODUCT USED FOR UNKNOWN INDICATION
     Route: 048
  3. IRON [Concomitant]
     Active Substance: IRON
     Indication: PRODUCT USED FOR UNKNOWN INDICATION
     Route: 048
  4. ZYRTEC [Concomitant]
     Active Substance: CETIRIZINE HYDROCHLORIDE
     Indication: PRODUCT USED FOR UNKNOWN INDICATION
     Route: 048
  5. FLONASE [Concomitant]
     Active Substance: FLUTICASONE PROPIONATE
     Indication: PRODUCT USED FOR UNKNOWN INDICATION
     Route: 045
  6. TYLENOL [Concomitant]
     Active Substance: ACETAMINOPHEN
     Indication: PAIN
     Route: 048
  7. JOHNSONS BABY POWDER (TALC) [Suspect]
     Active Substance: TALC
     Indication: PRODUCT USED FOR UNKNOWN INDICATION
     Dosage: LIKE A QUARTER SIZE. AND USED A LOT PROBABLY ONCE EVERY OTHER WEEK SMELLING IT SNIFFING IT.
     Route: 061
     Dates: start: 1995, end: 2014

REACTIONS (6)
  - Adenomyosis [Unknown]
  - Leiomyoma [Unknown]
  - Nasopharyngeal cancer [Unknown]
  - Nasal sinus cancer [Unknown]
  - Heavy menstrual bleeding [Unknown]
  - Intentional product misuse [Unknown]

NARRATIVE: CASE EVENT DATE: 1995
